FAERS Safety Report 7429388-4 (Version None)
Quarter: 2011Q2

REPORT INFORMATION
  Report Type: 
  Country: None (occurrence: None)
  Receive Date: 20110421
  Receipt Date: 20110408
  Transmission Date: 20111010
  Serious: Yes (Hospitalization, Other)
  Sender: FDA-Public Use
  Company Number: ES-PFIZER INC-2011086296

PATIENT
  Age: 83 Year
  Sex: Female

DRUGS (6)
  1. PANTOPRAZOLE [Suspect]
     Dosage: 40 MG DAILY
     Route: 048
  2. SIMVASTATIN [Interacting]
     Dosage: 40 MG DAILY
  3. METFORMIN [Concomitant]
     Dosage: UNK
  4. SINTROM [Interacting]
     Dosage: UNK
     Dates: start: 20071101, end: 20090907
  5. CLOPIDOGREL [Interacting]
  6. RONAME [Concomitant]
     Dosage: UNK

REACTIONS (4)
  - FEMUR FRACTURE [None]
  - DRUG INTERACTION [None]
  - HAEMATURIA [None]
  - HYDROCEPHALUS [None]
